FAERS Safety Report 5193958-7 (Version None)
Quarter: 2006Q4

REPORT INFORMATION
  Report Type: 
  Country: None (occurrence: None)
  Receive Date: 20061222
  Receipt Date: 20061215
  Transmission Date: 20070319
  Serious: Yes (Other)
  Sender: FDA-Public Use
  Company Number: 2006095375

PATIENT
  Sex: Female
  Weight: 49.8957 kg

DRUGS (8)
  1. LIPITOR [Suspect]
     Indication: BLOOD CHOLESTEROL INCREASED
     Dosage: 10 MG (10 MG, 1 IN 1 D), ORAL
     Route: 048
     Dates: start: 20060101, end: 20060701
  2. LIPITOR [Suspect]
     Indication: CARDIAC DISORDER
     Dosage: 10 MG (10 MG, 1 IN 1 D), ORAL
     Route: 048
     Dates: start: 20060101, end: 20060701
  3. LIPITOR [Suspect]
     Indication: CORONARY ARTERY DISEASE
     Dosage: 10 MG (10 MG, 1 IN 1 D), ORAL
     Route: 048
     Dates: start: 20060101, end: 20060701
  4. CELEBREX [Concomitant]
  5. TYLENOL [Concomitant]
  6. PLAVIX [Concomitant]
  7. FOSAMAX [Concomitant]
  8. LABETALOL HCL [Concomitant]

REACTIONS (9)
  - ACTIVITIES OF DAILY LIVING IMPAIRED [None]
  - ASTHENIA [None]
  - BACK PAIN [None]
  - BLOOD CREATINE PHOSPHOKINASE INCREASED [None]
  - DYSSTASIA [None]
  - GAIT DISTURBANCE [None]
  - HEPATIC ENZYME INCREASED [None]
  - MUSCLE ENZYME INCREASED [None]
  - PAIN IN EXTREMITY [None]
